FAERS Safety Report 8789140 (Version 1)
Quarter: 2012Q4

REPORT INFORMATION
  Report Type: Spontaneous
  Country: US (occurrence: None)
  Receive Date: 20120910
  Receipt Date: 20120910
  Transmission Date: 20130627
  Serious: Yes (Hospitalization)
  Sender: FDA-Public Use
  Company Number: None

PATIENT
  Age: 71 Year
  Sex: Female
  Weight: 61.69 kg

DRUGS (2)
  1. PROLIA [Suspect]
     Indication: OSTEOPOROSIS
     Dosage: 1 injection every 6 mo.
     Route: 042
     Dates: start: 20110818
  2. PROLIA [Suspect]
     Indication: OSTEOPOROSIS
     Dates: start: 20120224

REACTIONS (7)
  - Transient ischaemic attack [None]
  - Swelling face [None]
  - Ocular hyperaemia [None]
  - Eye pruritus [None]
  - Muscle spasms [None]
  - Cystitis [None]
  - Blister [None]
